FAERS Safety Report 13231441 (Version 1)
Quarter: 2017Q1

REPORT INFORMATION
  Report Type: Spontaneous
  Country: US (occurrence: US)
  Receive Date: 20170214
  Receipt Date: 20170214
  Transmission Date: 20170428
  Serious: No
  Sender: FDA-Public Use
  Company Number: US-XTTRIUM LABORATORIES, INC-1063080

PATIENT

DRUGS (1)
  1. SCRUB CARE EXIDINE -4 CHG [Suspect]
     Active Substance: CHLORHEXIDINE GLUCONATE
     Route: 061

REACTIONS (1)
  - Peripheral swelling [None]

NARRATIVE: CASE EVENT DATE: 20160811
